FAERS Safety Report 12850202 (Version 1)
Quarter: 2016Q4

REPORT INFORMATION
  Report Type: Spontaneous
  Country: CZ (occurrence: CZ)
  Receive Date: 20161014
  Receipt Date: 20161014
  Transmission Date: 20170207
  Serious: Yes (Death, Other)
  Sender: FDA-Public Use
  Company Number: CZ-MYLANLABS-2016M1043438

PATIENT

DRUGS (5)
  1. MOXONIDINE [Suspect]
     Active Substance: MOXONIDINE
     Indication: PRODUCT USED FOR UNKNOWN INDICATION
     Dosage: 50 TABLETS
     Route: 065
  2. TRANDOLAPRIL W/VERAPAMIL [Suspect]
     Active Substance: TRANDOLAPRIL\VERAPAMIL HYDROCHLORIDE
     Indication: PRODUCT USED FOR UNKNOWN INDICATION
     Dosage: 42 TABLETS
     Route: 048
  3. URAPIDIL [Suspect]
     Active Substance: URAPIDIL
     Indication: PRODUCT USED FOR UNKNOWN INDICATION
     Dosage: 250 TABLETS
     Route: 065
  4. ATORVASTATIN [Suspect]
     Active Substance: ATORVASTATIN
     Indication: PRODUCT USED FOR UNKNOWN INDICATION
     Dosage: 80 TABLETS
     Route: 065
  5. DIACEREIN [Suspect]
     Active Substance: DIACEREIN
     Indication: PRODUCT USED FOR UNKNOWN INDICATION
     Dosage: 80 TABLETS
     Route: 065

REACTIONS (5)
  - Toxicity to various agents [Fatal]
  - Overdose [Fatal]
  - Acute kidney injury [Fatal]
  - Completed suicide [Fatal]
  - Cardiogenic shock [Fatal]
